FAERS Safety Report 9603496 (Version 1)
Quarter: 2013Q4

REPORT INFORMATION
  Report Type: Report from Study
  Country: US (occurrence: US)
  Receive Date: 20131007
  Receipt Date: 20131007
  Transmission Date: 20140711
  Serious: Yes (Hospitalization)
  Sender: FDA-Public Use
  Company Number: US-ABBVIE-13P-163-1152843-00

PATIENT
  Age: 60 Year
  Sex: Female
  Weight: 54.48 kg

DRUGS (6)
  1. HUMIRA [Suspect]
     Indication: PSORIASIS
     Dates: start: 200804
  2. HUMIRA [Suspect]
     Dates: end: 201111
  3. ATORVASTATIN [Concomitant]
     Indication: BLOOD CHOLESTEROL INCREASED
  4. GABAPENTIN [Concomitant]
     Indication: ESSENTIAL TREMOR
  5. XANAX [Concomitant]
     Indication: ESSENTIAL TREMOR
  6. IPRATROPIUM BROMIDE [Concomitant]
     Indication: UPPER-AIRWAY COUGH SYNDROME

REACTIONS (12)
  - Vaginal haemorrhage [Not Recovered/Not Resolved]
  - Intraductal proliferative breast lesion [Recovered/Resolved]
  - Vomiting [Recovered/Resolved]
  - Sinusitis [Unknown]
  - Sinusitis [Unknown]
  - Psoriasis [Not Recovered/Not Resolved]
  - Sinusitis [Recovered/Resolved]
  - Rhinorrhoea [Recovered/Resolved]
  - Dyspnoea [Recovered/Resolved]
  - Anaesthetic complication [Recovered/Resolved]
  - Rhinorrhoea [Recovered/Resolved]
  - Dyspnoea [Recovered/Resolved]
